FAERS Safety Report 10557388 (Version 1)
Quarter: 2014Q4

REPORT INFORMATION
  Report Type: Spontaneous
  Country: US (occurrence: None)
  Receive Date: 20141029
  Receipt Date: 20141029
  Transmission Date: 20150529
  Serious: Yes (Hospitalization)
  Sender: FDA-Public Use
  Company Number: JK1461(27)

PATIENT
  Age: 73 Year
  Sex: Male

DRUGS (2)
  1. ALLOPURINOL. [Concomitant]
     Active Substance: ALLOPURINOL
  2. RICOLA COUGH DROPS [Suspect]
     Active Substance: HERBALS\MENTHOL
     Indication: COUGH
     Dates: start: 20141019

REACTIONS (5)
  - Gait disturbance [None]
  - Pharyngeal oedema [None]
  - Pruritus [None]
  - Hypersensitivity [None]
  - Visual impairment [None]

NARRATIVE: CASE EVENT DATE: 20141019
